FAERS Safety Report 7712459-2 (Version None)
Quarter: 2011Q3

REPORT INFORMATION
  Report Type: 
  Country: None (occurrence: None)
  Receive Date: 20110826
  Receipt Date: 20110826
  Transmission Date: 20111222
  Serious: Yes (Hospitalization, Other)
  Sender: FDA-Public Use
  Company Number: None

PATIENT
  Age: 32 Year
  Sex: Male
  Weight: 61.234 kg

DRUGS (1)
  1. DOXYCYCLINE HYCLATE [Suspect]
     Indication: URETHRAL DISORDER
     Dates: start: 20110622, end: 20110629

REACTIONS (7)
  - PROSTATIC DISORDER [None]
  - APPENDIX DISORDER [None]
  - RENAL DISORDER [None]
  - LIVER DISORDER [None]
  - GALLBLADDER DISORDER [None]
  - GENITAL INFECTION BACTERIAL [None]
  - PURULENCE [None]
